FAERS Safety Report 9004228 (Version 1)
Quarter: 2013Q1

REPORT INFORMATION
  Report Type: Spontaneous
  Country: US (occurrence: US)
  Receive Date: 20130109
  Receipt Date: 20130109
  Transmission Date: 20140127
  Serious: No
  Sender: FDA-Public Use
  Company Number: US-BIOGENIDEC-2013BI001511

PATIENT
  Age: 59 Year
  Sex: Female

DRUGS (5)
  1. TYSABRI [Suspect]
     Indication: MULTIPLE SCLEROSIS
     Route: 042
     Dates: start: 20071105, end: 20101217
  2. TYSABRI [Suspect]
     Indication: MULTIPLE SCLEROSIS
     Route: 042
     Dates: start: 20120911
  3. AVONEX [Concomitant]
     Indication: MULTIPLE SCLEROSIS
     Route: 030
     Dates: start: 19970701
  4. BACLOFEN [Concomitant]
     Indication: MUSCULOSKELETAL STIFFNESS
  5. NEURONTIN [Concomitant]
     Indication: NEURALGIA

REACTIONS (2)
  - Pruritus [Recovered/Resolved]
  - Herpes zoster [Recovered/Resolved]
